FAERS Safety Report 20564245 (Version 1)
Quarter: 2022Q1

REPORT INFORMATION
  Report Type: Spontaneous
  Country: IT (occurrence: None)
  Receive Date: 20220308
  Receipt Date: 20220308
  Transmission Date: 20220424
  Serious: Yes (Life-Threatening, Hospitalization, Other)
  Sender: FDA-Public Use
  Company Number: IT-Hikma Pharmaceuticals-IT-H14001-22-00711

PATIENT
  Age: 59 Year
  Sex: Female

DRUGS (7)
  1. CYTARABINE [Suspect]
     Active Substance: CYTARABINE
     Indication: Acute myeloid leukaemia
     Route: 065
     Dates: start: 20211231, end: 20220106
  2. GEMTUZUMAB OZOGAMICIN [Suspect]
     Active Substance: GEMTUZUMAB OZOGAMICIN
     Indication: Acute myeloid leukaemia
     Route: 065
     Dates: start: 20211231, end: 20220103
  3. GEMTUZUMAB OZOGAMICIN [Suspect]
     Active Substance: GEMTUZUMAB OZOGAMICIN
     Route: 065
     Dates: start: 20220106, end: 20220106
  4. DAUNORUBICIN HYDROCHLORIDE [Suspect]
     Active Substance: DAUNORUBICIN HYDROCHLORIDE
     Indication: Acute myeloid leukaemia
     Route: 065
     Dates: start: 20211231, end: 20220102
  5. OCTREOTIDE [Concomitant]
     Active Substance: OCTREOTIDE
     Indication: Product used for unknown indication
     Dosage: UNKNOWN
     Route: 065
  6. AMPHOTERICIN B [Concomitant]
     Active Substance: AMPHOTERICIN B
     Indication: Product used for unknown indication
     Dosage: UNKNOWN
     Route: 065
  7. VANCOMYCIN [Concomitant]
     Active Substance: VANCOMYCIN
     Indication: Product used for unknown indication
     Dosage: UNKNOWN
     Route: 065

REACTIONS (6)
  - Gastrointestinal inflammation [Recovered/Resolved]
  - Mucosal inflammation [Unknown]
  - Diarrhoea [Unknown]
  - Haemorrhagic diathesis [Unknown]
  - Pyrexia [Unknown]
  - Alpha haemolytic streptococcal infection [Unknown]

NARRATIVE: CASE EVENT DATE: 20220110
